FAERS Safety Report 25704097 (Version 1)
Quarter: 2025Q3

REPORT INFORMATION
  Report Type: Spontaneous
  Country: IN (occurrence: IN)
  Receive Date: 20250820
  Receipt Date: 20250820
  Transmission Date: 20251021
  Serious: Yes (Hospitalization, Other)
  Sender: RANBAXY
  Company Number: IN-SUN PHARMACEUTICAL INDUSTRIES LTD-2025R1-523246

PATIENT
  Age: 48 Year
  Sex: Female

DRUGS (1)
  1. OLANZAPINE [Suspect]
     Active Substance: OLANZAPINE
     Indication: Behaviour disorder
     Dosage: 10 MILLIGRAM, DAILY
     Route: 065

REACTIONS (4)
  - Deafness neurosensory [Recovering/Resolving]
  - Myoclonus [Recovered/Resolved]
  - Obstructive sleep apnoea syndrome [Recovering/Resolving]
  - Torticollis [Recovering/Resolving]
